FAERS Safety Report 25954033 (Version 1)
Quarter: 2025Q4

REPORT INFORMATION
  Report Type: Spontaneous
  Country: CN (occurrence: CN)
  Receive Date: 20251023
  Receipt Date: 20251023
  Transmission Date: 20260117
  Serious: Yes (Hospitalization, Disabling)
  Sender: ELI LILLY AND COMPANY
  Company Number: CN-ELI_LILLY_AND_COMPANY-CN202510013242

PATIENT
  Age: 75 Year
  Sex: Male
  Weight: 58.1 kg

DRUGS (3)
  1. PEMETREXED [Suspect]
     Active Substance: PEMETREXED
     Indication: Lung adenocarcinoma
     Dosage: 2 DOSAGE FORM, SINGLE
     Route: 041
     Dates: start: 20250724, end: 20250724
  2. SINTILIMAB [Suspect]
     Active Substance: SINTILIMAB
     Indication: Lung adenocarcinoma
     Dosage: 300 MG, SINGLE
     Route: 041
     Dates: start: 20250724, end: 20250724
  3. CARBOPLATIN [Suspect]
     Active Substance: CARBOPLATIN
     Indication: Lung adenocarcinoma
     Dosage: 1.2 G, SINGLE
     Route: 041
     Dates: start: 20250724, end: 20250724

REACTIONS (8)
  - Dermatitis [Recovering/Resolving]
  - Stevens-Johnson syndrome [Recovering/Resolving]
  - Nikolsky^s sign positive [Recovering/Resolving]
  - Neutrophil count increased [Recovering/Resolving]
  - Blood glucose increased [Recovering/Resolving]
  - Autoimmune blistering disease [Recovering/Resolving]
  - Blood sodium decreased [Recovering/Resolving]
  - Staphylococcal infection [Recovering/Resolving]

NARRATIVE: CASE EVENT DATE: 20250729
